FAERS Safety Report 13192751 (Version 2)
Quarter: 2017Q1

REPORT INFORMATION
  Report Type: Spontaneous
  Country: NL (occurrence: NL)
  Receive Date: 20170207
  Receipt Date: 20170216
  Transmission Date: 20170428
  Serious: Yes (Hospitalization, Other)
  Sender: FDA-Public Use
  Company Number: NL-PFIZER INC-2017047183

PATIENT
  Age: 40 Year
  Sex: Male

DRUGS (4)
  1. DIPHANTOINE [Suspect]
     Active Substance: PHENYTOIN
     Indication: EPILEPSY
     Dosage: 400 MG, DAILY
  2. DIPHANTOINE [Suspect]
     Active Substance: PHENYTOIN
     Dosage: 200 MG, DAILY
  3. DIPHANTOINE [Suspect]
     Active Substance: PHENYTOIN
     Dosage: 300 MG, DAILY
  4. MELLERIL /00034201/ [Concomitant]
     Dosage: 75 MG, DAILY

REACTIONS (3)
  - Substance-induced psychotic disorder [Recovered/Resolved]
  - Neurological symptom [Recovering/Resolving]
  - Toxicity to various agents [Recovering/Resolving]
